FAERS Safety Report 6555562-5 (Version None)
Quarter: 2010Q1

REPORT INFORMATION
  Report Type: 
  Country: None (occurrence: None)
  Receive Date: 20100128
  Receipt Date: 20100118
  Transmission Date: 20100710
  Serious: Yes (Other)
  Sender: FDA-Public Use
  Company Number: BE-BAXTER-2008BH001060

PATIENT
  Sex: Male

DRUGS (12)
  1. ANTIHEMOPHILIC FACTOR (HUMAN) [Suspect]
     Indication: FACTOR VIII DEFICIENCY
     Route: 065
     Dates: start: 19780401
  2. ANTIHEMOPHILIC FACTOR (HUMAN) [Suspect]
     Route: 065
     Dates: start: 19780701
  3. ANTIHEMOPHILIC FACTOR (HUMAN) [Suspect]
     Route: 065
     Dates: start: 19781001
  4. ANTIHEMOPHILIC FACTOR (HUMAN) [Suspect]
     Indication: FACTOR VIII DEFICIENCY
     Route: 065
     Dates: start: 19781001, end: 19851001
  5. ANTIHEMOPHILIC FACTOR (HUMAN) [Suspect]
     Indication: HAEMATOMA
     Route: 065
     Dates: start: 19781001, end: 19851001
  6. ANTIHEMOPHILIC FACTOR (HUMAN) [Suspect]
     Indication: HAEMATURIA
     Route: 065
     Dates: start: 19781001, end: 19851001
  7. ANTIHEMOPHILIC FACTOR (HUMAN) [Suspect]
     Indication: JOINT SPRAIN
     Route: 065
     Dates: start: 19781001, end: 19851001
  8. ANTIHEMOPHILIC FACTOR (HUMAN) [Suspect]
     Route: 065
     Dates: start: 19780401
  9. ANTIHEMOPHILIC FACTOR (HUMAN) [Suspect]
     Indication: HAEMORRHAGE
     Route: 065
     Dates: start: 19780401
  10. ANTIHEMOPHILIC FACTOR (HUMAN) [Suspect]
     Route: 065
     Dates: start: 19850101
  11. ANTIHEMOPHILIC FACTOR (HUMAN) [Suspect]
     Route: 065
     Dates: start: 19850101
  12. ROHYPNOL [Concomitant]

REACTIONS (1)
  - HEPATITIS C [None]
